FAERS Safety Report 8237992 (Version 2)
Quarter: 2013Q4

REPORT INFORMATION
  Report Type: Spontaneous
  Country: US (occurrence: US)
  Receive Date: 20111109
  Receipt Date: 20131209
  Transmission Date: 20140711
  Serious: Yes (Other)
  Sender: FDA-Public Use
  Company Number: US-GLAXOSMITHKLINE-A0915628A

PATIENT
  Age: 49 Year
  Sex: Female

DRUGS (1)
  1. AVANDIA [Suspect]
     Indication: DIABETES MELLITUS
     Dosage: 4MG PER DAY
     Route: 048
     Dates: start: 200009, end: 200212

REACTIONS (12)
  - Cerebrovascular accident [Not Recovered/Not Resolved]
  - Electroencephalogram abnormal [Unknown]
  - Convulsion [Unknown]
  - Speech disorder [Unknown]
  - Amnesia [Unknown]
  - Headache [Unknown]
  - Sinus disorder [Unknown]
  - Fatigue [Unknown]
  - Back pain [Unknown]
  - Dyspnoea [Unknown]
  - Coordination abnormal [Unknown]
  - Confusional state [Unknown]
